FAERS Safety Report 8217622-2 (Version None)
Quarter: 2012Q1

REPORT INFORMATION
  Report Type: 
  Country: None (occurrence: None)
  Receive Date: 20120319
  Receipt Date: 20120319
  Transmission Date: 20120608
  Serious: No
  Sender: FDA-Public Use
  Company Number: None

PATIENT
  Age: 35 Year
  Sex: Male
  Weight: 90.718 kg

DRUGS (1)
  1. PROPECIA [Suspect]

REACTIONS (1)
  - SEXUAL DYSFUNCTION [None]
